FAERS Safety Report 16489974 (Version 1)
Quarter: 2019Q2

REPORT INFORMATION
  Report Type: Spontaneous
  Country: US (occurrence: US)
  Receive Date: 20190628
  Receipt Date: 20190628
  Transmission Date: 20190711
  Serious: No
  Sender: FDA-Public Use
  Company Number: US-AMGEN-USASP2019100916

PATIENT
  Age: 64 Year
  Sex: Female

DRUGS (6)
  1. EMLA [LIDOCAINE;PRILOCAINE] [Concomitant]
     Dosage: UNK
     Route: 048
     Dates: start: 20190608
  2. RITUXAN [Concomitant]
     Active Substance: RITUXIMAB
     Indication: NON-HODGKIN^S LYMPHOMA
     Dosage: UNK (ADMINISTERED ON DAY 1 AND DAY 3)
     Route: 065
     Dates: start: 20190606
  3. NEULASTA [Suspect]
     Active Substance: PEGFILGRASTIM
     Indication: PRODUCT USED FOR UNKNOWN INDICATION
     Dosage: UNK UNK, AFTER CHEMO (SAME DAY OF CHEMO)
     Route: 065
     Dates: start: 20190608
  4. BENDAMUSTINE [Concomitant]
     Active Substance: BENDAMUSTINE
     Indication: NON-HODGKIN^S LYMPHOMA
     Dosage: UNK
     Dates: start: 20190607
  5. ADVIL [IBUPROFEN] [Concomitant]
     Active Substance: IBUPROFEN
     Indication: CHEST PAIN
     Dosage: UNK
     Route: 065
     Dates: start: 201906
  6. CLARITINE [Concomitant]
     Active Substance: LORATADINE
     Indication: CHEST PAIN
     Dosage: UNK
     Route: 065
     Dates: start: 201906

REACTIONS (6)
  - Chest pain [Recovering/Resolving]
  - Wrong technique in product usage process [Unknown]
  - Arthralgia [Recovering/Resolving]
  - Off label use [Unknown]
  - Oedema peripheral [Recovering/Resolving]
  - Pain in extremity [Recovering/Resolving]

NARRATIVE: CASE EVENT DATE: 20190608
